FAERS Safety Report 19627021 (Version 1)
Quarter: 2021Q3

REPORT INFORMATION
  Report Type: Spontaneous
  Country: CH (occurrence: CH)
  Receive Date: 20210729
  Receipt Date: 20210729
  Transmission Date: 20211014
  Serious: Yes (Other)
  Sender: FDA-Public Use
  Company Number: CH-GLAXOSMITHKLINE-CH2021162100

PATIENT
  Age: 48 Year
  Sex: Male

DRUGS (1)
  1. REQUIP [Suspect]
     Active Substance: ROPINIROLE HYDROCHLORIDE
     Indication: PARKINSON^S DISEASE
     Dosage: 8 MG, QD (REQUIP 8 MG DAILY ORAL INTAKE)
     Route: 048
     Dates: start: 20111101, end: 20180901

REACTIONS (4)
  - Anxiety [Recovering/Resolving]
  - Impulse-control disorder [Recovering/Resolving]
  - Depression [Recovering/Resolving]
  - Libido increased [Recovering/Resolving]

NARRATIVE: CASE EVENT DATE: 20111101
